FAERS Safety Report 20992509 (Version 2)
Quarter: 2022Q3

REPORT INFORMATION
  Report Type: Spontaneous
  Country: PT (occurrence: PT)
  Receive Date: 20220622
  Receipt Date: 20220831
  Transmission Date: 20221027
  Serious: Yes (Death, Hospitalization, Other)
  Sender: FDA-Public Use
  Company Number: PT-SA-SAC20220621001688

PATIENT
  Sex: Female

DRUGS (1)
  1. CEREZYME [Suspect]
     Active Substance: IMIGLUCERASE
     Indication: Gaucher^s disease type I
     Dosage: UNK

REACTIONS (14)
  - Septic shock [Fatal]
  - Cholecystitis acute [Unknown]
  - Tricuspid valve incompetence [Unknown]
  - Chemical peritonitis [Unknown]
  - Lithiasis [Unknown]
  - Pneumonia klebsiella [Unknown]
  - Candida infection [Unknown]
  - Cholangitis [Unknown]
  - Bacteraemia [Recovered/Resolved]
  - Pulmonary hypertension [Unknown]
  - Pleural effusion [Unknown]
  - Mitral valve incompetence [Unknown]
  - Aortic valve sclerosis [Unknown]
  - Aortic valve incompetence [Unknown]

NARRATIVE: CASE EVENT DATE: 20220430
